FAERS Safety Report 10953338 (Version 2)
Quarter: 2015Q1

REPORT INFORMATION
  Report Type: Spontaneous
  Country: US (occurrence: US)
  Receive Date: 20150325
  Receipt Date: 20150330
  Transmission Date: 20150721
  Serious: No
  Sender: FDA-Public Use
  Company Number: US-PFIZER INC-2015099622

PATIENT
  Age: 81 Year
  Sex: Male

DRUGS (1)
  1. LYRICA [Suspect]
     Active Substance: PREGABALIN
     Indication: FIBROMYALGIA
     Dosage: UNK

REACTIONS (11)
  - Myalgia [Unknown]
  - Dyspnoea [Unknown]
  - Dysstasia [Unknown]
  - Drug ineffective [Unknown]
  - Somnolence [Unknown]
  - Insomnia [Unknown]
  - Pain [Unknown]
  - Weight increased [Unknown]
  - Back pain [Unknown]
  - Dry mouth [Unknown]
  - Oedema [Unknown]
